FAERS Safety Report 7519512-7 (Version None)
Quarter: 2011Q2

REPORT INFORMATION
  Report Type: 
  Country: None (occurrence: None)
  Receive Date: 20110524
  Receipt Date: 20110512
  Transmission Date: 20111010
  Serious: Yes (Hospitalization)
  Sender: FDA-Public Use
  Company Number: DSJ-2011-06693

PATIENT
  Age: 84 Year
  Sex: Male
  Weight: 79 kg

DRUGS (13)
  1. RINGEREAZE (LOXOPROEN SODIUM) (TABLET) (LOXOPROFEN SODIUM) [Suspect]
     Indication: PAIN
     Dosage: 60 MG (60 MG, 1 IN 1 D), PER ORAL
     Route: 048
     Dates: end: 20110324
  2. TETUCUR (IRON) (TABLET) (IRON) [Concomitant]
  3. ETISEDAN (ETIZOLAM) (TABLET) (ETIZOLAM) [Suspect]
     Indication: SLEEP DISORDER
     Dosage: 0.5 MG (0.5 MG, 1 IN 1 D), PER ORAL
     Route: 048
     Dates: end: 20110324
  4. LASIX [Concomitant]
  5. KYUCAL (CHARCOAL, ACTIVATED) (GRANULES) (CHARCOAL, ACTIVATED) [Concomitant]
  6. LANDEL (EFONIDIPINE HYDROCHLORIDE) (EFONIDIPINE HYDROCHLORIDE) [Concomitant]
  7. LEDOLPER (BROTIZOLAM) (TABLET) (BROTIZOLAM) [Concomitant]
  8. ARGAMATE (CALCIUM POLYSTYRENE SULFONATE) (CALCIUM POLYSTYRENE SULFONAT [Concomitant]
  9. ATARAX-P (HYDROXYZINE HYDROCHLORIDE) (CAPSULE) (HYDROZINE HYDROCHLORID [Concomitant]
  10. OLMESARTAN MEDOXOMIL [Suspect]
     Indication: HYPERTENSION
     Dosage: 10 MG (10 MG, 1 IN 1 D), PER ORAL
     Route: 048
     Dates: start: 20101014, end: 20110403
  11. OMEPRAZOLE [Suspect]
     Indication: REFLUX OESOPHAGITIS
     Dosage: 10 MG (10 MG,  1 IN 1 D), PER ORAL
     Route: 048
     Dates: end: 20110324
  12. COMESGEN (MECOBALAMIN) (TABLET) (MECOBALAMIN) [Concomitant]
  13. SOLMIRAN (ETHYL ICOSAPENTATE) (GRANULES) (ETHYLICOSAPENTATE) [Concomitant]

REACTIONS (2)
  - INTERSTITIAL LUNG DISEASE [None]
  - NEPHROGENIC ANAEMIA [None]
